FAERS Safety Report 11317214 (Version 2)
Quarter: 2015Q4

REPORT INFORMATION
  Report Type: Spontaneous
  Country: JP (occurrence: JP)
  Receive Date: 20150728
  Receipt Date: 20151201
  Transmission Date: 20160304
  Serious: Yes (Death, Disabling)
  Sender: FDA-Public Use
  Company Number: JP-TEVA-574200ISR

PATIENT
  Age: 59 Year
  Sex: Male
  Weight: 54 kg

DRUGS (10)
  1. OXINORM [Suspect]
     Active Substance: OXYCODONE HYDROCHLORIDE
     Dosage: 10 MILLIGRAM DAILY;
     Route: 048
     Dates: start: 20150622, end: 20150622
  2. ONETAXOTERE [Concomitant]
     Active Substance: DOCETAXEL
     Indication: CHEMOTHERAPY
     Route: 065
  3. E-FEN BUCCAL [Suspect]
     Active Substance: FENTANYL CITRATE
     Dosage: 500 MICROGRAM DAILY;
     Route: 002
     Dates: start: 20150622, end: 20150623
  4. FENTOS [Concomitant]
     Active Substance: FENTANYL
     Indication: CANCER PAIN
     Dosage: 3 MILLIGRAM DAILY;
     Route: 062
     Dates: start: 20150612
  5. FENTOS [Concomitant]
     Active Substance: FENTANYL
     Dosage: 6 MILLIGRAM DAILY;
     Route: 062
     Dates: start: 20150616, end: 20150623
  6. E-FEN BUCCAL [Suspect]
     Active Substance: FENTANYL CITRATE
     Dosage: 300-500 MICROGRAM /DAY
     Route: 002
     Dates: start: 20150614, end: 20150621
  7. CISPLATIN. [Concomitant]
     Active Substance: CISPLATIN
     Indication: CHEMOTHERAPY
     Route: 065
  8. FENTOS [Concomitant]
     Active Substance: FENTANYL
     Dosage: 4 MILLIGRAM DAILY;
     Route: 062
     Dates: start: 20150615, end: 20150615
  9. OXINORM [Suspect]
     Active Substance: OXYCODONE HYDROCHLORIDE
     Indication: BREAKTHROUGH PAIN
     Dosage: 5 MILLIGRAM DAILY;
     Route: 048
     Dates: start: 20150613, end: 20150622
  10. E-FEN BUCCAL [Suspect]
     Active Substance: FENTANYL CITRATE
     Indication: BREAKTHROUGH PAIN
     Dosage: 100-250 MICROG DAILY DOSE
     Route: 002
     Dates: start: 20150613, end: 20150614

REACTIONS (4)
  - Respiratory depression [Recovered/Resolved]
  - Vomiting [Recovered/Resolved]
  - Pneumonia aspiration [Fatal]
  - Altered state of consciousness [Not Recovered/Not Resolved]

NARRATIVE: CASE EVENT DATE: 20150623
